FAERS Safety Report 19551524 (Version 1)
Quarter: 2021Q3

REPORT INFORMATION
  Report Type: Spontaneous
  Country: CN (occurrence: CN)
  Receive Date: 20210714
  Receipt Date: 20210714
  Transmission Date: 20211014
  Serious: Yes (Other)
  Sender: FDA-Public Use
  Company Number: CN-PFIZER INC-2021807946

PATIENT
  Age: 70 Year
  Sex: Male
  Weight: 62 kg

DRUGS (1)
  1. CRIZOTINIB [Suspect]
     Active Substance: CRIZOTINIB
     Indication: LUNG NEOPLASM MALIGNANT
     Dosage: 250 MG, 2X/DAY
     Route: 048
     Dates: start: 20210220, end: 20210316

REACTIONS (1)
  - Hemianopia [Recovering/Resolving]

NARRATIVE: CASE EVENT DATE: 20210316
